FAERS Safety Report 4322232-3 (Version None)
Quarter: 2004Q1

REPORT INFORMATION
  Report Type: 
  Country: None (occurrence: None)
  Receive Date: 20040319
  Receipt Date: 20010310
  Transmission Date: 20041129
  Serious: Yes (Other)
  Sender: FDA-Public Use
  Company Number: 163-20785-04030281

PATIENT
  Age: 79 Year
  Sex: Female

DRUGS (1)
  1. THALOMID [Suspect]
     Dosage: ORAL; 9 PILLS
     Route: 048

REACTIONS (5)
  - CEREBRAL HAEMORRHAGE [None]
  - FALL [None]
  - FEELING ABNORMAL [None]
  - FRACTURED COCCYX [None]
  - HEAD INJURY [None]
